FAERS Safety Report 10233866 (Version 8)
Quarter: 2015Q4

REPORT INFORMATION
  Report Type: Report from Study
  Country: US (occurrence: US)
  Receive Date: 20140612
  Receipt Date: 20151008
  Transmission Date: 20160304
  Serious: Yes (Other)
  Sender: FDA-Public Use
  Company Number: US-SA-2014SA011297

PATIENT
  Age: 51 Year
  Sex: Male

DRUGS (3)
  1. LYRICA [Concomitant]
     Active Substance: PREGABALIN
     Indication: PAIN IN EXTREMITY
  2. AUBAGIO [Suspect]
     Active Substance: TERIFLUNOMIDE
     Indication: MULTIPLE SCLEROSIS
     Route: 048
     Dates: start: 20131217
  3. LYRICA [Concomitant]
     Active Substance: PREGABALIN
     Indication: BURNING SENSATION

REACTIONS (13)
  - Malaise [Unknown]
  - Nodule [Unknown]
  - Testicular cyst [Unknown]
  - Urinary tract infection [Unknown]
  - Lip discolouration [Unknown]
  - Back pain [Recovering/Resolving]
  - Diarrhoea [Unknown]
  - Blood urine present [Unknown]
  - Gait disturbance [Unknown]
  - Burning sensation [Not Recovered/Not Resolved]
  - Nephrolithiasis [Not Recovered/Not Resolved]
  - Dehydration [Recovering/Resolving]
  - Haemorrhage [Unknown]

NARRATIVE: CASE EVENT DATE: 20140329
